FAERS Safety Report 5609561-8 (Version None)
Quarter: 2008Q1

REPORT INFORMATION
  Report Type: 
  Country: None (occurrence: None)
  Receive Date: 20080131
  Receipt Date: 20080118
  Transmission Date: 20080703
  Serious: Yes (Other)
  Sender: FDA-Public Use
  Company Number: US-PFIZER INC-2007091680

PATIENT
  Sex: Female
  Weight: 92.272 kg

DRUGS (4)
  1. CHANTIX [Suspect]
     Indication: SMOKING CESSATION THERAPY
  2. CYMBALTA [Concomitant]
     Dosage: DAILY DOSE:60MG-TEXT:DAILY
  3. KLONOPIN [Concomitant]
     Dosage: DAILY DOSE:.25MG
  4. ADDERALL 10 [Concomitant]

REACTIONS (7)
  - ASTHENIA [None]
  - FATIGUE [None]
  - FEELING ABNORMAL [None]
  - HYPOAESTHESIA [None]
  - MOVEMENT DISORDER [None]
  - SLUGGISHNESS [None]
  - WRONG TECHNIQUE IN DRUG USAGE PROCESS [None]
